FAERS Safety Report 6410979-4 (Version None)
Quarter: 2009Q4

REPORT INFORMATION
  Report Type: 
  Country: None (occurrence: None)
  Receive Date: 20091020
  Receipt Date: 20091020
  Transmission Date: 20100525
  Serious: Yes (Other)
  Sender: FDA-Public Use
  Company Number: None

PATIENT
  Sex: Female
  Weight: 89.8122 kg

DRUGS (1)
  1. ARICEPT [Suspect]
     Dosage: 1 DAILY 4 YEAR AGO?

REACTIONS (1)
  - NIGHTMARE [None]
